FAERS Safety Report 26216604 (Version 1)
Quarter: 2025Q4

REPORT INFORMATION
  Report Type: Spontaneous
  Country: AU (occurrence: AU)
  Receive Date: 20251231
  Receipt Date: 20251231
  Transmission Date: 20260117
  Serious: Yes (Death, Other)
  Sender: AMGEN
  Company Number: AU-AMGEN-AUSSP2025257263

PATIENT

DRUGS (4)
  1. CARFILZOMIB [Suspect]
     Active Substance: CARFILZOMIB
     Indication: Plasma cell myeloma refractory
     Dosage: UNK,  (56 MG/M2 [K56] OR 70 MG/M2 [K70]) ON DAYS 1, 8, AND 15 OF EACH 28-DAY CYCLE
     Route: 040
  2. SONROTOCLAX [Suspect]
     Active Substance: SONROTOCLAX
     Indication: Plasma cell myeloma refractory
     Dosage: UNK UNK, QD, (320 OR 640 MG) ONCE DAILY
     Route: 048
  3. DEXAMETHASONE [Suspect]
     Active Substance: DEXAMETHASONE
     Indication: Plasma cell myeloma refractory
     Dosage: 40 MILLIGRAM, QWK
     Route: 040
  4. DEXAMETHASONE [Suspect]
     Active Substance: DEXAMETHASONE
     Dosage: 40 MILLIGRAM, QWK
     Route: 048

REACTIONS (16)
  - Arrhythmia [Unknown]
  - Death [Fatal]
  - Hypertension [Unknown]
  - Pneumonia [Unknown]
  - Thrombocytopenia [Unknown]
  - Acute kidney injury [Unknown]
  - Infection [Unknown]
  - Adverse event [Unknown]
  - Atrial flutter [Unknown]
  - Tachycardia [Unknown]
  - Disease progression [Unknown]
  - Insomnia [Unknown]
  - Fatigue [Unknown]
  - Nausea [Unknown]
  - Anaemia [Unknown]
  - Back pain [Unknown]
